FAERS Safety Report 24045702 (Version 3)
Quarter: 2024Q3

REPORT INFORMATION
  Report Type: Spontaneous
  Country: JP (occurrence: JP)
  Receive Date: 20240703
  Receipt Date: 20240708
  Transmission Date: 20241017
  Serious: Yes (Death, Life-Threatening, Other)
  Sender: BAYER
  Company Number: JP-BAYER-2022A067506

PATIENT
  Age: 58 Year
  Sex: Male

DRUGS (2)
  1. STIVARGA [Suspect]
     Active Substance: REGORAFENIB MONOHYDRATE
     Indication: Rectal cancer recurrent
     Dosage: DAILY DOSE 80 MG
     Route: 048
     Dates: start: 20220412, end: 20220426
  2. NAPROXEN [Concomitant]
     Active Substance: NAPROXEN

REACTIONS (9)
  - Death [Fatal]
  - Upper gastrointestinal perforation [None]
  - Ascites [Recovering/Resolving]
  - Pneumoperitoneum [Recovering/Resolving]
  - Abdominal pain [None]
  - Palmar-plantar erythrodysaesthesia syndrome [Recovered/Resolved]
  - Tachypnoea [None]
  - Tachycardia [None]
  - Off label use [None]

NARRATIVE: CASE EVENT DATE: 20220412
